FAERS Safety Report 8116314-8 (Version None)
Quarter: 2012Q1

REPORT INFORMATION
  Report Type: 
  Country: None (occurrence: None)
  Receive Date: 20120206
  Receipt Date: 20101115
  Transmission Date: 20120608
  Serious: Yes (Hospitalization)
  Sender: FDA-Public Use
  Company Number: US-GLAXOSMITHKLINE-A0896415A

PATIENT
  Sex: Male
  Weight: 113.6 kg

DRUGS (8)
  1. AMARYL [Concomitant]
     Dates: start: 20000919
  2. INSULIN [Concomitant]
  3. METOPROLOL [Concomitant]
  4. AMITRIPTYLINE HCL [Concomitant]
  5. PRAVACHOL [Concomitant]
  6. AVANDIA [Suspect]
     Indication: DIABETES MELLITUS
     Dosage: 8MG TWICE PER DAY
     Route: 048
     Dates: start: 19991201, end: 20040908
  7. AVANDAMET [Suspect]
     Route: 048
     Dates: start: 20000919
  8. LISINOPRIL [Concomitant]

REACTIONS (4)
  - ACUTE MYOCARDIAL INFARCTION [None]
  - CARDIAC DISORDER [None]
  - CORONARY ARTERY DISEASE [None]
  - CARDIOVASCULAR DISORDER [None]
